FAERS Safety Report 9629782 (Version 1)
Quarter: 2013Q4

REPORT INFORMATION
  Report Type: Report from Study
  Country: CA (occurrence: CA)
  Receive Date: 20131017
  Receipt Date: 20131017
  Transmission Date: 20140711
  Serious: Yes (Other)
  Sender: FDA-Public Use
  Company Number: CA-JNJFOC-20131007905

PATIENT
  Sex: Female
  Weight: 87.7 kg

DRUGS (9)
  1. REMICADE [Suspect]
     Indication: CROHN^S DISEASE
     Route: 042
     Dates: start: 201002
  2. LYRICA [Concomitant]
     Route: 065
  3. MULTIVITAMINS [Concomitant]
     Route: 065
  4. VITAMIN B12 [Concomitant]
     Route: 065
  5. IRON [Concomitant]
     Route: 065
  6. VITAMIN B [Concomitant]
     Route: 065
  7. MELOXICAM [Concomitant]
     Route: 065
  8. MAGNESIUM [Concomitant]
     Route: 065
  9. DILAUDID [Concomitant]
     Dosage: PRN
     Route: 065

REACTIONS (4)
  - Fistula [Recovering/Resolving]
  - Erythema nodosum [Not Recovered/Not Resolved]
  - Headache [Not Recovered/Not Resolved]
  - Intestinal operation [Unknown]
